FAERS Safety Report 6897621-3 (Version None)
Quarter: 2010Q3

REPORT INFORMATION
  Report Type: 
  Country: None (occurrence: None)
  Receive Date: 20100802
  Receipt Date: 20070702
  Transmission Date: 20110219
  Serious: No
  Sender: FDA-Public Use
  Company Number: US-PFIZER INC-2007051953

PATIENT
  Sex: Female
  Weight: 113.4 kg

DRUGS (4)
  1. LYRICA [Suspect]
     Indication: NEUROPATHY PERIPHERAL
     Dates: start: 20040101
  2. LYRICA [Suspect]
     Indication: CONVULSION
  3. SEROQUEL [Concomitant]
     Dosage: 200 MG AT NIGHT
  4. CELEXA [Concomitant]

REACTIONS (1)
  - DRUG INEFFECTIVE [None]
